FAERS Safety Report 16965425 (Version 1)
Quarter: 2019Q4

REPORT INFORMATION
  Report Type: Other
  Country: CA (occurrence: CA)
  Receive Date: 20191028
  Receipt Date: 20191028
  Transmission Date: 20200122
  Serious: Yes (Other)
  Sender: FDA-Public Use
  Company Number: CA-PFIZER INC-2019459448

PATIENT
  Age: 4 Year
  Sex: Male

DRUGS (1)
  1. PAMIDRONATE DISODIUM. [Suspect]
     Active Substance: PAMIDRONATE DISODIUM
     Indication: LANGERHANS^ CELL HISTIOCYTOSIS
     Dosage: 1.0 MG/KG, MONTHLY
     Route: 042

REACTIONS (6)
  - Pyrexia [Recovering/Resolving]
  - Product use in unapproved indication [Recovering/Resolving]
  - Malignant neoplasm progression [Recovering/Resolving]
  - Off label use [Recovering/Resolving]
  - Drug ineffective [Recovering/Resolving]
  - Langerhans^ cell histiocytosis [Recovering/Resolving]
